FAERS Safety Report 6567929-X (Version None)
Quarter: 2010Q1

REPORT INFORMATION
  Report Type: 
  Country: None (occurrence: None)
  Receive Date: 20100203
  Receipt Date: 20100125
  Transmission Date: 20100710
  Serious: Yes (Hospitalization)
  Sender: FDA-Public Use
  Company Number: JP-NOVOPROD-303602

PATIENT
  Age: 61 Year
  Sex: Female

DRUGS (2)
  1. PENFILL 30R CHU [Suspect]
     Indication: TYPE 2 DIABETES MELLITUS
     Dosage: UNK U, UNK
     Route: 058
     Dates: end: 20090201
  2. ACTOS [Concomitant]
     Indication: TYPE 2 DIABETES MELLITUS
     Dosage: /PO
     Route: 048
     Dates: start: 20040901

REACTIONS (2)
  - OEDEMA [None]
  - WEIGHT INCREASED [None]
